FAERS Safety Report 21114791 (Version 1)
Quarter: 2022Q3

REPORT INFORMATION
  Report Type: Report from Study
  Country: US (occurrence: US)
  Receive Date: 20220721
  Receipt Date: 20220721
  Transmission Date: 20221027
  Serious: Yes (Hospitalization)
  Sender: FDA-Public Use
  Company Number: US-TAKEDA-2022TUS042418

PATIENT
  Sex: Male
  Weight: 84 kg

DRUGS (2)
  1. PONATINIB [Suspect]
     Active Substance: PONATINIB
     Indication: Philadelphia positive acute lymphocytic leukaemia
     Dosage: 45 MILLIGRAM, QD
     Route: 065
     Dates: start: 20220623
  2. PONATINIB [Suspect]
     Active Substance: PONATINIB
     Dosage: 45 MILLIGRAM, QD
     Route: 065
     Dates: start: 20220711

REACTIONS (5)
  - COVID-19 [Unknown]
  - Abdominal pain [Unknown]
  - Hypersensitivity [Unknown]
  - Abdominal pain upper [Unknown]
  - Off label use [Unknown]
